FAERS Safety Report 21257585 (Version 1)
Quarter: 2022Q3

REPORT INFORMATION
  Report Type: Spontaneous
  Country: US (occurrence: None)
  Receive Date: 20220826
  Receipt Date: 20220826
  Transmission Date: 20221026
  Serious: No
  Sender: FDA-Public Use
  Company Number: US-Orexo US, Inc.-ORE202107-000039

PATIENT
  Sex: Female

DRUGS (2)
  1. ZUBSOLV [Suspect]
     Active Substance: BUPRENORPHINE HYDROCHLORIDE\NALOXONE HYDROCHLORIDE
     Indication: Drug dependence
     Dates: start: 2020
  2. HEROIN [Concomitant]
     Active Substance: DIAMORPHINE

REACTIONS (1)
  - Treatment noncompliance [Unknown]
